FAERS Safety Report 7442844-8 (Version None)
Quarter: 2011Q2

REPORT INFORMATION
  Report Type: 
  Country: None (occurrence: None)
  Receive Date: 20110428
  Receipt Date: 20110414
  Transmission Date: 20111010
  Serious: Yes (Other)
  Sender: FDA-Public Use
  Company Number: US-BAYER-2011-020663

PATIENT
  Age: 34 Year
  Sex: Female

DRUGS (1)
  1. MIRENA [Suspect]
     Indication: CONTRACEPTION
     Dosage: UNK
     Dates: start: 20080820

REACTIONS (3)
  - PELVIC PAIN [None]
  - VAGINAL HAEMORRHAGE [None]
  - ECTOPIC PREGNANCY WITH INTRAUTERINE DEVICE [None]
